FAERS Safety Report 18490110 (Version 1)
Quarter: 2020Q4

REPORT INFORMATION
  Report Type: Spontaneous
  Country: US (occurrence: US)
  Receive Date: 20201110
  Receipt Date: 20201110
  Transmission Date: 20210114
  Serious: Yes (Hospitalization)
  Sender: FDA-Public Use
  Company Number: None

PATIENT
  Age: 72 Year
  Sex: Male

DRUGS (12)
  1. HYDROCHLOROT [Concomitant]
     Active Substance: HYDROCHLOROTHIAZIDE
  2. TACROLIMUS. [Concomitant]
     Active Substance: TACROLIMUS
  3. PREDNISONE. [Concomitant]
     Active Substance: PREDNISONE
  4. TRAZODONE [Concomitant]
     Active Substance: TRAZODONE HYDROCHLORIDE
  5. COREG [Concomitant]
     Active Substance: CARVEDILOL
  6. LANTUS [Concomitant]
     Active Substance: INSULIN GLARGINE
  7. ATORVASTATI N [Concomitant]
  8. LOSARTAN POT [Concomitant]
     Active Substance: LOSARTAN POTASSIUM
  9. MEMANTINE. [Concomitant]
     Active Substance: MEMANTINE
  10. VENTOLIN HFA [Concomitant]
     Active Substance: ALBUTEROL SULFATE
  11. ASPIRIN. [Concomitant]
     Active Substance: ASPIRIN
  12. TACROLIMUS. [Suspect]
     Active Substance: TACROLIMUS
     Indication: RENAL TRANSPLANT
     Dosage: FREQ: 1MG AM.0.5MG PM
     Route: 048
     Dates: start: 20200410

REACTIONS (3)
  - Fall [None]
  - Skin injury [None]
  - Urinary tract infection [None]

NARRATIVE: CASE EVENT DATE: 20201109
